FAERS Safety Report 5717926-9 (Version None)
Quarter: 2008Q2

REPORT INFORMATION
  Report Type: 
  Country: None (occurrence: None)
  Receive Date: 20080425
  Receipt Date: 20080416
  Transmission Date: 20081010
  Serious: Yes (Hospitalization)
  Sender: FDA-Public Use
  Company Number: FR-ASTRAZENECA-2008CG00317

PATIENT
  Age: 961 Month
  Sex: Male

DRUGS (5)
  1. CASODEX [Suspect]
     Indication: PROSTATE CANCER
     Route: 048
     Dates: start: 20070901, end: 20080110
  2. ZOXAN [Suspect]
     Indication: PROSTATOMEGALY
     Route: 048
     Dates: start: 20070101, end: 20080115
  3. ZOLADEX [Concomitant]
     Indication: PROSTATE CANCER
     Route: 058
     Dates: start: 20071001, end: 20071101
  4. ZOLADEX [Concomitant]
     Route: 058
  5. TINSET [Concomitant]
     Route: 048
     Dates: start: 20071030, end: 20071201

REACTIONS (3)
  - CONJUNCTIVITIS [None]
  - ERYTHRODERMIC PSORIASIS [None]
  - PYREXIA [None]
